FAERS Safety Report 9052017 (Version 1)
Quarter: 2013Q1

REPORT INFORMATION
  Report Type: Spontaneous
  Country: US (occurrence: None)
  Receive Date: 20130129
  Receipt Date: 20130129
  Transmission Date: 20140127
  Serious: Yes (Other)
  Sender: FDA-Public Use
  Company Number: None

PATIENT
  Age: 63 Year
  Sex: Female
  Weight: 83.01 kg

DRUGS (3)
  1. ATORVASTATIN [Suspect]
     Indication: HYPERLIPIDAEMIA
     Route: 048
     Dates: start: 20111214, end: 201202
  2. TYLENOL [Concomitant]
  3. ZANTAC [Concomitant]

REACTIONS (3)
  - Nausea [None]
  - Fatigue [None]
  - Pain [None]
